FAERS Safety Report 6406732-8 (Version None)
Quarter: 2009Q4

REPORT INFORMATION
  Report Type: 
  Country: None (occurrence: None)
  Receive Date: 20091020
  Receipt Date: 20091012
  Transmission Date: 20100525
  Serious: Yes (Hospitalization, Other)
  Sender: FDA-Public Use
  Company Number: HU-JNJFOC-20091004149

PATIENT
  Age: 12 Year
  Sex: Male

DRUGS (4)
  1. INFLIXIMAB [Suspect]
     Indication: CROHN'S DISEASE
     Route: 042
  2. METHYLPREDNISOLONE [Concomitant]
     Indication: CROHN'S DISEASE
  3. MESALAZINE [Concomitant]
     Indication: CROHN'S DISEASE
  4. AZATHIOPRINE [Concomitant]
     Indication: CROHN'S DISEASE

REACTIONS (6)
  - ABDOMINAL PAIN UPPER [None]
  - ANAL FISTULA [None]
  - DECREASED APPETITE [None]
  - DRUG RESISTANCE [None]
  - FREQUENT BOWEL MOVEMENTS [None]
  - WEIGHT DECREASED [None]
